FAERS Safety Report 7296977-X (Version None)
Quarter: 2011Q1

REPORT INFORMATION
  Report Type: 
  Country: None (occurrence: None)
  Receive Date: 20110204
  Receipt Date: 20110120
  Transmission Date: 20110831
  Serious: Yes (Other)
  Sender: FDA-Public Use
  Company Number: 012412

PATIENT
  Age: 5 Year
  Sex: Male

DRUGS (4)
  1. CYCLOSPORINE [Concomitant]
  2. MELPHALAN HYDROCHLORIDE [Concomitant]
  3. METHYLPREDNISOLONE [Concomitant]
  4. BUSULFAN [Suspect]
     Indication: STEM CELL TRANSPLANT
     Dosage: ORAL
     Route: 048

REACTIONS (2)
  - MUSCLE RIGIDITY [None]
  - INAPPROPRIATE ANTIDIURETIC HORMONE SECRETION [None]
